FAERS Safety Report 21440788 (Version 1)
Quarter: 2022Q4

REPORT INFORMATION
  Report Type: Spontaneous
  Country: TW (occurrence: TW)
  Receive Date: 20221011
  Receipt Date: 20221011
  Transmission Date: 20230113
  Serious: Yes (Hospitalization)
  Sender: FDA-Public Use
  Company Number: TW-BIOMARINAP-TW-2022-146094

PATIENT

DRUGS (1)
  1. KUVAN [Suspect]
     Active Substance: SAPROPTERIN DIHYDROCHLORIDE
     Indication: Phenylketonuria
     Dosage: 100 MILLIGRAM, QD
     Route: 048

REACTIONS (1)
  - COVID-19 [Unknown]

NARRATIVE: CASE EVENT DATE: 20221004
